FAERS Safety Report 8773792 (Version 3)
Quarter: 2014Q1

REPORT INFORMATION
  Report Type: Spontaneous
  Country: US (occurrence: US)
  Receive Date: 20120907
  Receipt Date: 20140219
  Transmission Date: 20141002
  Serious: Yes (Hospitalization, Disabling, Other)
  Sender: FDA-Public Use
  Company Number: US-MERCK-1209USA000896

PATIENT
  Sex: Female

DRUGS (4)
  1. FOSAMAX [Suspect]
     Indication: OSTEOPOROSIS
     Dosage: 10 MG, QW
     Route: 048
     Dates: start: 19951117, end: 200607
  2. FOSAMAX [Suspect]
     Dosage: 70 MG, QW
     Route: 048
     Dates: end: 200607
  3. PRILOSEC [Concomitant]
     Dosage: UNK
     Dates: start: 1996
  4. ASPIRIN [Concomitant]
     Indication: RHEUMATOID ARTHRITIS
     Dosage: 8-9 TABLETS DAILY
     Route: 048

REACTIONS (25)
  - Femur fracture [Not Recovered/Not Resolved]
  - Intramedullary rod insertion [Unknown]
  - Anaemia postoperative [Unknown]
  - Hypoxia [Recovered/Resolved]
  - Fluid overload [Unknown]
  - Vulval cancer [Unknown]
  - Bone disorder [Not Recovered/Not Resolved]
  - Stress fracture [Unknown]
  - Stress fracture [Unknown]
  - Lumbar vertebral fracture [Unknown]
  - Inappropriate schedule of drug administration [Unknown]
  - Ecchymosis [Unknown]
  - Excoriation [Unknown]
  - Spinal fracture [Unknown]
  - Vitamin B complex deficiency [Unknown]
  - Kyphosis [Unknown]
  - Psoriasis [Unknown]
  - Bronchitis [Unknown]
  - Injection site bruising [Unknown]
  - Gastric disorder [Unknown]
  - Pleural effusion [Unknown]
  - Blood potassium decreased [Unknown]
  - Mass [Unknown]
  - Infection [Unknown]
  - Arthralgia [Unknown]
